FAERS Safety Report 9889219 (Version 2)
Quarter: 2014Q1

REPORT INFORMATION
  Report Type: Spontaneous
  Country: US (occurrence: None)
  Receive Date: 20140207
  Receipt Date: 20140226
  Transmission Date: 20141002
  Serious: Yes (Hospitalization, Other)
  Sender: FDA-Public Use
  Company Number: ADR-2014-00171

PATIENT
  Sex: Male

DRUGS (6)
  1. BACLOFEN [Suspect]
     Indication: PAIN
  2. MORPHINE [Suspect]
  3. CLONIDINE [Suspect]
     Dosage: INTRATHECFAL.
  4. SUFENTANIL [Suspect]
     Dosage: INTRATHECVAL.
  5. UNSPECIFIED ORAL MEDICATION [Suspect]
  6. BUPIVACAINE [Suspect]

REACTIONS (9)
  - Drug hypersensitivity [None]
  - Insomnia [None]
  - Hyperhidrosis [None]
  - Pyrexia [None]
  - Feeling hot [None]
  - Treatment noncompliance [None]
  - Overdose [None]
  - Sensory loss [None]
  - Ill-defined disorder [None]
